FAERS Safety Report 10921007 (Version 1)
Quarter: 2015Q1

REPORT INFORMATION
  Report Type: Spontaneous
  Country: US (occurrence: None)
  Receive Date: 20150313
  Receipt Date: 20150313
  Transmission Date: 20150721
  Serious: Yes (Disabling, Other)
  Sender: FDA-Public Use
  Company Number: None

PATIENT
  Age: 62 Year
  Sex: Female
  Weight: 54.43 kg

DRUGS (1)
  1. LEVAQUIN [Suspect]
     Active Substance: LEVOFLOXACIN
     Indication: PNEUMONIA
     Dosage: 1 PILL ONCE DAILY
     Route: 048
     Dates: start: 20140923, end: 20140930

REACTIONS (9)
  - Fall [None]
  - Ligament sprain [None]
  - Arthropathy [None]
  - Paraesthesia [None]
  - Arthralgia [None]
  - Hypoaesthesia [None]
  - Gait disturbance [None]
  - Impaired driving ability [None]
  - Musculoskeletal disorder [None]

NARRATIVE: CASE EVENT DATE: 20141012
